FAERS Safety Report 9722495 (Version 1)
Quarter: 2013Q4

REPORT INFORMATION
  Report Type: Spontaneous
  Country: US (occurrence: None)
  Receive Date: 20131127
  Receipt Date: 20131127
  Transmission Date: 20140711
  Serious: Yes (Other)
  Sender: FDA-Public Use
  Company Number: None

PATIENT
  Age: 68 Year
  Sex: Female
  Weight: 61.24 kg

DRUGS (1)
  1. PHENYTOIN [Suspect]
     Indication: CONVULSION
     Dosage: 3CAPS ALTERNATING W/ 4 CAPS EVERY OTHER DAY?300 MG ALT W/ 400MG QOD
     Dates: start: 2009

REACTIONS (2)
  - Convulsion [None]
  - Product substitution issue [None]
